FAERS Safety Report 5058614-4 (Version None)
Quarter: 2006Q3

REPORT INFORMATION
  Report Type: 
  Country: None (occurrence: None)
  Receive Date: 20060721
  Receipt Date: 20051206
  Transmission Date: 20061208
  Serious: No
  Sender: FDA-Public Use
  Company Number: US-AMGEN-KDL160682

PATIENT
  Sex: Female
  Weight: 66.3 kg

DRUGS (1)
  1. PROCRIT [Suspect]
     Indication: RENAL FAILURE CHRONIC

REACTIONS (3)
  - CONTUSION [None]
  - PAIN OF SKIN [None]
  - RENAL PAIN [None]
